FAERS Safety Report 7199802-0 (Version None)
Quarter: 2010Q4

REPORT INFORMATION
  Report Type: 
  Country: None (occurrence: None)
  Receive Date: 20101228
  Receipt Date: 20101216
  Transmission Date: 20110411
  Serious: No
  Sender: FDA-Public Use
  Company Number: US-PFIZER INC-2010175860

PATIENT
  Age: 78 Year
  Sex: Female
  Weight: 68.027 kg

DRUGS (1)
  1. ADVIL PM [Suspect]
     Dosage: 2 DF, 1X/DAY
     Route: 048
     Dates: start: 20101214, end: 20101214

REACTIONS (2)
  - EYELID SENSORY DISORDER [None]
  - SENSORY DISTURBANCE [None]
